FAERS Safety Report 4946187-3 (Version None)
Quarter: 2006Q1

REPORT INFORMATION
  Report Type: 
  Country: None (occurrence: None)
  Receive Date: 20060118
  Receipt Date: 20050128
  Transmission Date: 20060701
  Serious: Yes (Hospitalization)
  Sender: FDA-Public Use
  Company Number: US-JNJFOC-20041201214

PATIENT
  Age: 57 Year
  Sex: Female

DRUGS (1)
  1. DOXIL (DOXORUBICIN HYDROCHLORIDE) LIPOSME INJECTION [Suspect]
     Indication: OVARIAN CANCER
     Dosage: 50MG/M2 X1 CYCLE

REACTIONS (3)
  - MALIGNANT NEOPLASM PROGRESSION [None]
  - OVARIAN CANCER [None]
  - PARALYSIS [None]
